FAERS Safety Report 11238896 (Version 8)
Quarter: 2018Q1

REPORT INFORMATION
  Report Type: Report from Study
  Country: CA (occurrence: CA)
  Receive Date: 20150706
  Receipt Date: 20180328
  Transmission Date: 20180508
  Serious: Yes (Other)
  Sender: FDA-Public Use
  Company Number: CA-ROCHE-1603592

PATIENT
  Age: 61 Year
  Sex: Male

DRUGS (9)
  1. ESBRIET [Suspect]
     Active Substance: PIRFENIDONE
     Indication: IDIOPATHIC PULMONARY FIBROSIS
     Route: 048
     Dates: start: 20150425
  2. LIPITOR [Concomitant]
     Active Substance: ATORVASTATIN CALCIUM
  3. ANDROGEL [Concomitant]
     Active Substance: TESTOSTERONE
  4. VITAMIN B12 [Concomitant]
     Active Substance: CYANOCOBALAMIN
  5. ESBRIET [Suspect]
     Active Substance: PIRFENIDONE
     Route: 048
     Dates: start: 20150502
  6. CIALIS [Concomitant]
     Active Substance: TADALAFIL
  7. OMEGA 3 [Concomitant]
     Active Substance: OMEGA-3 FATTY ACIDS
     Dosage: KRILL
     Route: 065
  8. ESBRIET [Suspect]
     Active Substance: PIRFENIDONE
     Dosage: THERAPY END DATE :08/OCT/2015, AND RESTARTED ON 12/OCT/2015.
     Route: 048
     Dates: start: 20150511, end: 20151008
  9. ESBRIET [Suspect]
     Active Substance: PIRFENIDONE
     Route: 048
     Dates: start: 20151012

REACTIONS (19)
  - Liver abscess [Unknown]
  - Decreased appetite [Not Recovered/Not Resolved]
  - Dyspepsia [Not Recovered/Not Resolved]
  - Nausea [Recovered/Resolved]
  - Faeces pale [Unknown]
  - Body temperature increased [Not Recovered/Not Resolved]
  - Pruritus [Recovered/Resolved]
  - Defaecation disorder [Recovered/Resolved]
  - Infection parasitic [Unknown]
  - Insomnia [Not Recovered/Not Resolved]
  - Fatigue [Recovered/Resolved]
  - Abdominal pain [Recovered/Resolved]
  - Rash [Not Recovered/Not Resolved]
  - Influenza like illness [Not Recovered/Not Resolved]
  - Peripheral coldness [Recovered/Resolved]
  - Diarrhoea [Not Recovered/Not Resolved]
  - Burning sensation [Recovered/Resolved]
  - Hyperhidrosis [Recovered/Resolved]
  - Influenza [Recovering/Resolving]

NARRATIVE: CASE EVENT DATE: 201507
